FAERS Safety Report 17600485 (Version 8)
Quarter: 2020Q4

REPORT INFORMATION
  Report Type: Report from Study
  Country: CA (occurrence: CA)
  Receive Date: 20200330
  Receipt Date: 20201225
  Transmission Date: 20210113
  Serious: Yes (Other)
  Sender: FDA-Public Use
  Company Number: PHHY2017CA079090

PATIENT
  Age: 59 Year
  Sex: Male

DRUGS (7)
  1. SANDOSTATIN LAR DEPOT [Suspect]
     Active Substance: OCTREOTIDE ACETATE
     Dosage: 30 MG, QMO(EVERY 4 WEEKS)
     Route: 030
     Dates: start: 20180629
  2. EZETROL [Concomitant]
     Active Substance: EZETIMIBE
     Indication: PRODUCT USED FOR UNKNOWN INDICATION
     Dosage: UNK UNK, QD
     Route: 065
     Dates: start: 20180706
  3. INNOHEP [Concomitant]
     Active Substance: TINZAPARIN SODIUM
     Indication: PRODUCT USED FOR UNKNOWN INDICATION
     Dosage: UNK
     Route: 065
  4. AFINITOR [Suspect]
     Active Substance: EVEROLIMUS
     Indication: PRODUCT USED FOR UNKNOWN INDICATION
     Dosage: 10 MG, QD (START DATE: 26UNK 2017)
     Route: 048
     Dates: start: 2017, end: 20200206
  5. COVERSYL [Concomitant]
     Active Substance: PERINDOPRIL
     Indication: PRODUCT USED FOR UNKNOWN INDICATION
     Dosage: UNK UNK, QD (START DATE: 08 UNK 2018)
     Route: 065
     Dates: start: 2018
  6. SANDOSTATIN LAR DEPOT [Suspect]
     Active Substance: OCTREOTIDE ACETATE
  7. SANDOSTATIN LAR DEPOT [Suspect]
     Active Substance: OCTREOTIDE ACETATE
     Indication: CARCINOID TUMOUR
     Dosage: 30 MG, QMO (EVERY 4 WEEKS)
     Route: 030
     Dates: start: 20170524, end: 20171218

REACTIONS (30)
  - Type 2 diabetes mellitus [Unknown]
  - Neuralgia [Unknown]
  - Pain [Unknown]
  - Abdominal distension [Recovered/Resolved]
  - Gingival pain [Unknown]
  - Pyrexia [Unknown]
  - Headache [Unknown]
  - Pneumonitis [Recovering/Resolving]
  - Dizziness [Unknown]
  - Cough [Not Recovered/Not Resolved]
  - Labyrinthitis [Unknown]
  - Heart rate increased [Unknown]
  - Ear pain [Unknown]
  - Insomnia [Unknown]
  - Nausea [Unknown]
  - Drug ineffective [Unknown]
  - Blood pressure increased [Unknown]
  - Metastases to liver [Unknown]
  - Blood triglycerides increased [Recovering/Resolving]
  - Influenza like illness [Unknown]
  - Herpes zoster [Unknown]
  - Gastroenteritis [Unknown]
  - Malignant neoplasm progression [Unknown]
  - Abdominal pain [Recovering/Resolving]
  - Abdominal pain upper [Unknown]
  - Back pain [Recovered/Resolved]
  - Nasal congestion [Unknown]
  - Fatigue [Unknown]
  - Dyspnoea [Not Recovered/Not Resolved]
  - Injection site pain [Unknown]

NARRATIVE: CASE EVENT DATE: 20170524
